FAERS Safety Report 4327523-8 (Version None)
Quarter: 2004Q1

REPORT INFORMATION
  Report Type: 
  Country: None (occurrence: None)
  Receive Date: 20040325
  Receipt Date: 20040309
  Transmission Date: 20041129
  Serious: Yes (Hospitalization)
  Sender: FDA-Public Use
  Company Number: 2004SE00813

PATIENT
  Sex: Female
  Weight: 63 kg

DRUGS (11)
  1. BLOPRESS [Suspect]
     Indication: HYPERTENSION
     Dosage: 8 MG QD PO
     Route: 048
     Dates: end: 20040209
  2. AMLODIPINE BESYLATE [Concomitant]
  3. ZOPICLONE [Concomitant]
  4. AROTINOLOL HYDROCHLORIDE [Concomitant]
  5. URSODEOXYCHOLIC ACID [Concomitant]
  6. GLYCYRRHIZIC ACID [Concomitant]
  7. ROXITHROMYCIN [Concomitant]
  8. PRANOPROFEN [Concomitant]
  9. CLOPERASTINE HYDROCHLORIDE [Concomitant]
  10. MARZULENE S [Concomitant]
  11. MEFENAMIC ACID [Concomitant]

REACTIONS (1)
  - HEPATITIS [None]
